FAERS Safety Report 5882676-5 (Version None)
Quarter: 2008Q3

REPORT INFORMATION
  Report Type: 
  Country: None (occurrence: None)
  Receive Date: 20080913
  Receipt Date: 20080808
  Transmission Date: 20090109
  Serious: No
  Sender: FDA-Public Use
  Company Number: US-ABBOTT-08P-163-0470334-00

PATIENT
  Sex: Female
  Weight: 65.83 kg

DRUGS (4)
  1. HUMIRA [Suspect]
     Indication: CROHN'S DISEASE
     Route: 058
     Dates: start: 20080101
  2. VITAMIN TAB [Concomitant]
     Indication: VITAMIN SUPPLEMENTATION
     Route: 048
     Dates: start: 20080808
  3. VICODEN [Concomitant]
     Indication: ENDOMETRIOSIS
     Dosage: 9-10 PILLS A MONTH
     Route: 048
  4. PHENERGAN SUPP [Concomitant]
     Indication: CROHN'S DISEASE
     Dates: start: 20000101

REACTIONS (1)
  - INJECTION SITE IRRITATION [None]
